FAERS Safety Report 8313353-9 (Version None)
Quarter: 2012Q2

REPORT INFORMATION
  Report Type: 
  Country: None (occurrence: None)
  Receive Date: 20120426
  Receipt Date: 20120419
  Transmission Date: 20120825
  Serious: Yes (Other)
  Sender: FDA-Public Use
  Company Number: PHHY2012BR033797

PATIENT
  Sex: Male

DRUGS (3)
  1. PHENYTOIN [Suspect]
     Dosage: 100 MG
  2. PHENOBARBITAL TAB [Suspect]
  3. TEGRETOL-XR [Suspect]
     Dosage: 400 MG
     Route: 048

REACTIONS (3)
  - TONGUE NEOPLASM [None]
  - NECK MASS [None]
  - LUNG NEOPLASM [None]
